FAERS Safety Report 14578412 (Version 2)
Quarter: 2018Q1

REPORT INFORMATION
  Report Type: Spontaneous
  Country: IT (occurrence: IT)
  Receive Date: 20180227
  Receipt Date: 20180315
  Transmission Date: 20180509
  Serious: Yes (Hospitalization)
  Sender: FDA-Public Use
  Company Number: IT-SA-2017SA141047

PATIENT
  Age: 86 Year
  Sex: Male

DRUGS (4)
  1. IBUPROFEN. [Suspect]
     Active Substance: IBUPROFEN
     Route: 048
  2. ZOLPIDEM [Suspect]
     Active Substance: ZOLPIDEM\ZOLPIDEM TARTRATE
     Route: 048
  3. TAPENTADOL [Suspect]
     Active Substance: TAPENTADOL
     Route: 048
  4. ALCOHOL. [Suspect]
     Active Substance: ALCOHOL
     Route: 065

REACTIONS (7)
  - Metabolic acidosis [Recovering/Resolving]
  - Overdose [Unknown]
  - Sopor [Recovering/Resolving]
  - Suicide attempt [Unknown]
  - Drug abuse [Unknown]
  - Alcohol interaction [Recovering/Resolving]
  - Toxicity to various agents [Recovering/Resolving]

NARRATIVE: CASE EVENT DATE: 20170709
